FAERS Safety Report 14385133 (Version 1)
Quarter: 2018Q1

REPORT INFORMATION
  Report Type: Spontaneous
  Country: US (occurrence: US)
  Receive Date: 20180115
  Receipt Date: 20180115
  Transmission Date: 20180509
  Serious: Yes (Hospitalization)
  Sender: FDA-Public Use
  Company Number: US-LPDUSPRD-20180019

PATIENT
  Age: 22 Year
  Sex: Male

DRUGS (1)
  1. SODIUM CHLORIDE INJECTION, USP (2802-25) [Suspect]
     Active Substance: SODIUM CHLORIDE
     Dosage: 1 L
     Route: 058

REACTIONS (3)
  - Cellulitis of male external genital organ [Recovering/Resolving]
  - Off label use [Unknown]
  - Intentional product misuse [Unknown]
